FAERS Safety Report 21443293 (Version 2)
Quarter: 2022Q4

REPORT INFORMATION
  Report Type: Other
  Country: US (occurrence: US)
  Receive Date: 20221012
  Receipt Date: 20221102
  Transmission Date: 20230113
  Serious: No
  Sender: FDA-Public Use
  Company Number: US-DECIPHERA PHARMACEUTICALS LLC-2022US000790

PATIENT
  Sex: Male

DRUGS (4)
  1. QINLOCK [Suspect]
     Active Substance: RIPRETINIB
     Indication: Gastrointestinal stromal tumour
     Dosage: 150 MILLIGRAM, QD
     Route: 048
     Dates: start: 20220902
  2. QINLOCK [Suspect]
     Active Substance: RIPRETINIB
     Dosage: 50 MILLIGRAM, QD (TAKING ONE TABLET ON ODD DAYS OF THE  MONTH AND 2 TABLETS ON EVEN DAYS)
     Route: 048
  3. QINLOCK [Suspect]
     Active Substance: RIPRETINIB
     Dosage: 100 MILLIGRAM, QD (TAKING ONE TABLET ON ODD DAYS OF THE  MONTH AND 2 TABLETS ON EVEN DAYS)
     Route: 048
  4. QINLOCK [Suspect]
     Active Substance: RIPRETINIB
     Dosage: 50 MILLIGRAM, QD (ONE A DAY)
     Route: 048
     Dates: start: 20221005

REACTIONS (11)
  - Drug intolerance [Recovering/Resolving]
  - Muscle tightness [Recovering/Resolving]
  - Skin lesion [Unknown]
  - Sciatica [Recovering/Resolving]
  - Sinus disorder [Recovering/Resolving]
  - Nasal congestion [Recovering/Resolving]
  - Nasal disorder [Not Recovered/Not Resolved]
  - Myalgia [Recovering/Resolving]
  - Dyspnoea [Recovering/Resolving]
  - Palmar-plantar erythrodysaesthesia syndrome [Unknown]
  - Incorrect dose administered [Unknown]
